FAERS Safety Report 21789966 (Version 2)
Quarter: 2023Q2

REPORT INFORMATION
  Report Type: Report from Study
  Country: US (occurrence: US)
  Receive Date: 20221228
  Receipt Date: 20230621
  Transmission Date: 20230721
  Serious: Yes (Congenital Anomaly)
  Sender: FDA-Public Use
  Company Number: US-PFIZER INC-PV202200131279

PATIENT
  Sex: Male
  Weight: 3.895 kg

DRUGS (7)
  1. XELJANZ [Suspect]
     Active Substance: TOFACITINIB CITRATE
     Indication: Colitis ulcerative
     Dosage: 10 MG, 2X/DAY
     Route: 064
     Dates: start: 20190415, end: 20190415
  2. XELJANZ [Suspect]
     Active Substance: TOFACITINIB CITRATE
     Dosage: 10 MG, 2X/DAY
     Route: 064
     Dates: start: 20191015, end: 20221019
  3. ASPIRIN [Concomitant]
     Active Substance: ASPIRIN
     Indication: Pregnancy
     Dosage: 81 MG, 1X/DAY
     Route: 064
     Dates: start: 20220430, end: 20221019
  4. BALSALAZIDE DISODIUM [Concomitant]
     Active Substance: BALSALAZIDE DISODIUM
     Indication: Colitis ulcerative
     Dosage: 750 MG, 1X/DAY
     Route: 064
     Dates: start: 20190215, end: 20221019
  5. MINERALS\VITAMINS [Concomitant]
     Active Substance: MINERALS\VITAMINS
     Dosage: 1 PILL, 1X/DAY
     Route: 064
     Dates: start: 20210815, end: 20221019
  6. PROBIOTICS NOS [Concomitant]
     Active Substance: PROBIOTICS NOS
     Indication: Gastrointestinal disorder
     Dosage: 1 DF, 1 DAY
     Route: 064
     Dates: start: 20220105, end: 20221019
  7. ZYRTEC [Concomitant]
     Active Substance: CETIRIZINE HYDROCHLORIDE
     Indication: Hypersensitivity
     Dosage: 1 PILL, 1X/DAY
     Route: 064
     Dates: start: 20220105, end: 20221019

REACTIONS (4)
  - Maternal exposure during pregnancy [Unknown]
  - Chordee [Unknown]
  - Hypospadias [Unknown]
  - Hydronephrosis [Unknown]

NARRATIVE: CASE EVENT DATE: 20221012
